FAERS Safety Report 6634657-1 (Version None)
Quarter: 2010Q1

REPORT INFORMATION
  Report Type: 
  Country: None (occurrence: None)
  Receive Date: 20100315
  Receipt Date: 20100303
  Transmission Date: 20100710
  Serious: Yes (Other)
  Sender: FDA-Public Use
  Company Number: B0639456A

PATIENT
  Age: 60 Year
  Sex: Female

DRUGS (4)
  1. LAMICTAL CD [Suspect]
     Indication: EPILEPSY
     Dosage: 100MG TWICE PER DAY
     Route: 048
  2. ORFIRIL [Suspect]
     Indication: EPILEPSY
     Dosage: 300MG SIX TIMES PER DAY
     Route: 048
  3. REMERON [Suspect]
     Indication: DRUG USE FOR UNKNOWN INDICATION
     Dosage: 45MG PER DAY
     Route: 048
  4. TRAZODONE HCL [Suspect]
     Indication: DRUG USE FOR UNKNOWN INDICATION
     Dosage: 50MG PER DAY
     Route: 048

REACTIONS (2)
  - CONFUSIONAL STATE [None]
  - ENCEPHALOPATHY [None]
